FAERS Safety Report 5917117-2 (Version None)
Quarter: 2008Q4

REPORT INFORMATION
  Report Type: 
  Country: None (occurrence: None)
  Receive Date: 20081014
  Receipt Date: 20081001
  Transmission Date: 20090506
  Serious: Yes (Other)
  Sender: FDA-Public Use
  Company Number: GR-ELI_LILLY_AND_COMPANY-GR200810000733

PATIENT
  Age: 52 Year
  Sex: Male

DRUGS (2)
  1. CECLOR [Suspect]
     Indication: TONSILLITIS
     Dosage: 750 MG, 2/D
     Route: 048
     Dates: start: 20080917, end: 20080924
  2. MESULID [Concomitant]
     Dosage: 100 MG, 2/D
     Route: 048
     Dates: start: 20080919, end: 20080920

REACTIONS (1)
  - TYPE IV HYPERSENSITIVITY REACTION [None]
